FAERS Safety Report 8015467-X (Version None)
Quarter: 2011Q4

REPORT INFORMATION
  Report Type: 
  Country: None (occurrence: None)
  Receive Date: 20111223
  Receipt Date: 20111215
  Transmission Date: 20120403
  Serious: Yes (Life-Threatening)
  Sender: FDA-Public Use
  Company Number: AUR-APL-2011-06209

PATIENT
  Age: 61 Year
  Sex: Female

DRUGS (2)
  1. RAMIPRIL [Suspect]
     Indication: HYPERTENSION
  2. ALTEPLASE (ALTEPLASE) [Suspect]
     Indication: ISCHAEMIC STROKE
     Dosage: 6.1 MG, INTRAVENOUS
     Route: 042

REACTIONS (2)
  - ANAPHYLACTOID SHOCK [None]
  - DRUG INTERACTION [None]
